FAERS Safety Report 18718408 (Version 1)
Quarter: 2021Q1

REPORT INFORMATION
  Report Type: Spontaneous
  Country: FR (occurrence: FR)
  Receive Date: 20210108
  Receipt Date: 20210108
  Transmission Date: 20210419
  Serious: Yes (Hospitalization)
  Sender: FDA-Public Use
  Company Number: NVSC2021FR000861

PATIENT
  Age: 46 Year
  Sex: Female

DRUGS (2)
  1. PARACETAMOL [Suspect]
     Active Substance: ACETAMINOPHEN
     Indication: PAIN
     Dosage: 1500 MG, QD
     Route: 048
     Dates: start: 20201213, end: 20201213
  2. DAFALGAN [Suspect]
     Active Substance: ACETAMINOPHEN
     Indication: PAIN
     Dosage: UNK (CF COMMENTAIRES)
     Route: 048
     Dates: start: 20201213, end: 20201213

REACTIONS (4)
  - Inappropriate schedule of product administration [Recovered/Resolved]
  - Hepatitis acute [Recovering/Resolving]
  - Hepatocellular injury [Recovering/Resolving]
  - Accidental overdose [Recovered/Resolved]

NARRATIVE: CASE EVENT DATE: 20201213
